FAERS Safety Report 8470532-8 (Version None)
Quarter: 2012Q2

REPORT INFORMATION
  Report Type: 
  Country: None (occurrence: None)
  Receive Date: 20120627
  Receipt Date: 20120618
  Transmission Date: 20120825
  Serious: Yes (Other)
  Sender: FDA-Public Use
  Company Number: FR-VERTEX PHARMACEUTICALS INC.-000000000000000960

PATIENT
  Sex: Female

DRUGS (3)
  1. COPEGUS [Concomitant]
     Indication: HEPATITIS C
  2. INCIVO [Suspect]
     Indication: HEPATITIS C
     Dosage: DOSAGE FORM: TABLET
     Route: 048
     Dates: end: 20120306
  3. PEGASYS [Concomitant]
     Indication: HEPATITIS C

REACTIONS (1)
  - RASH MACULO-PAPULAR [None]
